FAERS Safety Report 20016828 (Version 1)
Quarter: 2021Q4

REPORT INFORMATION
  Report Type: Spontaneous
  Country: US (occurrence: None)
  Receive Date: 20211105
  Receipt Date: 20211105
  Transmission Date: 20220303
  Serious: No
  Sender: FDA-Public Use
  Company Number: None

PATIENT
  Age: 29 Year
  Sex: Female
  Weight: 62.1 kg

DRUGS (1)
  1. REGEN-COV [Suspect]
     Active Substance: CASIRIVIMAB\IMDEVIMAB
     Indication: COVID-19
     Dosage: OTHER FREQUENCY : ONCE;?
     Route: 041
     Dates: start: 20211104, end: 20211104

REACTIONS (6)
  - Infusion related reaction [None]
  - Hyperhidrosis [None]
  - Cyanosis [None]
  - Bradycardia [None]
  - Loss of consciousness [None]
  - Pulse absent [None]

NARRATIVE: CASE EVENT DATE: 20211104
